FAERS Safety Report 6359392-9 (Version None)
Quarter: 2009Q3

REPORT INFORMATION
  Report Type: 
  Country: None (occurrence: None)
  Receive Date: 20090917
  Receipt Date: 20090908
  Transmission Date: 20100115
  Serious: Yes (Other)
  Sender: FDA-Public Use
  Company Number: US-NOVOPROD-291457

PATIENT
  Age: 50 Year
  Sex: Female

DRUGS (4)
  1. NOVOLIN R [Suspect]
     Indication: INSULIN-REQUIRING TYPE 2 DIABETES MELLITUS
     Dosage: 20 IU, QD
     Route: 058
     Dates: start: 19930101
  2. NOVOLIN R [Suspect]
     Dosage: 20 IU, QD
     Route: 058
     Dates: start: 19930101
  3. NOVOLIN N [Suspect]
     Indication: INSULIN-REQUIRING TYPE 2 DIABETES MELLITUS
     Dosage: 20 IU, QD
     Route: 058
  4. SIMVASTATIN [Concomitant]
     Indication: HYPERCHOLESTEROLAEMIA
     Route: 048

REACTIONS (5)
  - COLON CANCER [None]
  - DIARRHOEA [None]
  - DIZZINESS [None]
  - MUSCLE SPASMS [None]
  - VOMITING [None]
